FAERS Safety Report 11055194 (Version 1)
Quarter: 2015Q2

REPORT INFORMATION
  Report Type: Spontaneous
  Country: US (occurrence: US)
  Receive Date: 20150422
  Receipt Date: 20150422
  Transmission Date: 20150821
  Serious: Yes (Hospitalization)
  Sender: FDA-Public Use
  Company Number: US-SA-2015SA021972

PATIENT
  Age: 32 Year
  Sex: Female

DRUGS (1)
  1. ENOXAPARIN SODIUM - WINTHROP [Suspect]
     Active Substance: ENOXAPARIN SODIUM
     Indication: COAGULOPATHY
     Route: 065
     Dates: start: 20150205

REACTIONS (2)
  - Haemoptysis [Unknown]
  - Pain [Unknown]

NARRATIVE: CASE EVENT DATE: 201502
